FAERS Safety Report 7234878-3 (Version None)
Quarter: 2011Q1

REPORT INFORMATION
  Report Type: 
  Country: None (occurrence: None)
  Receive Date: 20110120
  Receipt Date: 20110118
  Transmission Date: 20110831
  Serious: No
  Sender: FDA-Public Use
  Company Number: US-PFIZER INC-2011012702

PATIENT
  Sex: Female
  Weight: 129.25 kg

DRUGS (2)
  1. DIOVAN [Concomitant]
     Indication: HYPERTENSION
     Dosage: ONCE A DAY
  2. CALAN [Suspect]
     Indication: HYPERTENSION
     Dosage: 120 MG, 1X/DAY
     Route: 048

REACTIONS (2)
  - BLOOD CHOLESTEROL INCREASED [None]
  - LABORATORY TEST ABNORMAL [None]
